FAERS Safety Report 23599734 (Version 3)
Quarter: 2025Q4

REPORT INFORMATION
  Report Type: Spontaneous
  Country: US (occurrence: US)
  Receive Date: 20240306
  Receipt Date: 20251229
  Transmission Date: 20260117
  Serious: Yes (Other)
  Sender: ELI LILLY AND COMPANY
  Company Number: US-ELI_LILLY_AND_COMPANY-US202402014655

PATIENT
  Age: 56 Year
  Sex: Female

DRUGS (1)
  1. TRULICITY [Suspect]
     Active Substance: DULAGLUTIDE
     Indication: Type 2 diabetes mellitus
     Dosage: 1.5 MG, WEEKLY (1/W)
     Route: 065
     Dates: start: 20210615, end: 20230710

REACTIONS (11)
  - Malnutrition [Unknown]
  - Fear of eating [Unknown]
  - Depression [Unknown]
  - Weight decreased [Unknown]
  - Dehydration [Unknown]
  - Impaired gastric emptying [Unknown]
  - Vomiting [Unknown]
  - Nausea [Unknown]
  - Abdominal pain [Unknown]
  - Diarrhoea [Unknown]
  - Gastrointestinal hypomotility [Unknown]
